FAERS Safety Report 10227456 (Version 1)
Quarter: 2014Q2

REPORT INFORMATION
  Report Type: Spontaneous
  Country: US (occurrence: None)
  Receive Date: 20140606
  Receipt Date: 20140606
  Transmission Date: 20141212
  Serious: Yes (Death, Other)
  Sender: FDA-Public Use
  Company Number: ADR-2014-00962

PATIENT
  Sex: 0

DRUGS (4)
  1. COMPOUNDED BACLOFEN INTRATHECAL [Suspect]
     Dosage: DAY
  2. DILAUDID INTRATHECAL [Concomitant]
     Dosage: DAY
  3. BUPIVACAINE INTRATHECAL [Suspect]
     Dosage: DAY
  4. CLONIDINE INTRATHECAL [Suspect]
     Dosage: DAY

REACTIONS (2)
  - Bladder cancer [None]
  - Malignant neoplasm progression [None]
